FAERS Safety Report 9838488 (Version 1)
Quarter: 2013Q4

REPORT INFORMATION
  Report Type: Spontaneous
  Country: US (occurrence: None)
  Receive Date: 20131206
  Receipt Date: 20131206
  Transmission Date: 20140711
  Serious: Yes (Other)
  Sender: FDA-Public Use
  Company Number: 373881

PATIENT
  Age: 71 Year
  Sex: Female
  Weight: 80.7 kg

DRUGS (15)
  1. NOVOLOG [Suspect]
     Indication: TYPE 1 DIABETES MELLITUS
     Dosage: PUMP
     Route: 058
     Dates: start: 2012
  2. LIPITOR (ATORVASTATIN CALCIUM) [Concomitant]
  3. ASPIRIN (ACETYLSALICYLIC ACID) [Concomitant]
  4. ROCALTROL (CALCITRIOL) [Concomitant]
  5. VITAMIN D (ERGOCALCIFEROL) [Concomitant]
  6. PLAVIX (CLOPIDOGREL BISULFATE) [Concomitant]
  7. NEXIUM (ESOMEPRAZOLE MAGNESIUM) [Concomitant]
  8. ZETIA (EZETIMIBE) [Concomitant]
  9. FELODIPINE (FELODIPINE) [Concomitant]
  10. LASIX (FUROSEMIDE) [Concomitant]
  11. GLUCOTROL (GLIPIZIDE) [Concomitant]
  12. SYNTHROID (LEVOTHYROXINE SODIUM) [Concomitant]
  13. ZESTRIL (LISINOPRIL) [Concomitant]
  14. LOPRESSOR (METOPROLOL TARTRATE) [Concomitant]
  15. TRAMADOL (TRAMADOL) [Concomitant]

REACTIONS (2)
  - Drug ineffective [None]
  - Blood glucose increased [None]
